FAERS Safety Report 17017074 (Version 1)
Quarter: 2019Q4

REPORT INFORMATION
  Report Type: Spontaneous
  Country: US (occurrence: US)
  Receive Date: 20191111
  Receipt Date: 20191111
  Transmission Date: 20200122
  Serious: Yes (Other)
  Sender: FDA-Public Use
  Company Number: US-MYLANLABS-2019M1105986

PATIENT
  Age: 23 Year
  Sex: Male

DRUGS (5)
  1. METHIMAZOLE. [Suspect]
     Active Substance: METHIMAZOLE
     Indication: THYROTOXIC PERIODIC PARALYSIS
     Dosage: 5 MILLIGRAM, Q8H
     Route: 048
  2. PROPRANOLOL [Suspect]
     Active Substance: PROPRANOLOL HYDROCHLORIDE
     Indication: THYROTOXIC PERIODIC PARALYSIS
     Dosage: RECEIVED 3 DOSES
     Route: 042
  3. POTASSIUM CHLORIDE. [Suspect]
     Active Substance: POTASSIUM CHLORIDE
     Indication: THYROTOXIC PERIODIC PARALYSIS
     Dosage: SINGLE DOSE
     Route: 048
  4. PROPRANOLOL [Suspect]
     Active Substance: PROPRANOLOL HYDROCHLORIDE
     Indication: THYROTOXIC PERIODIC PARALYSIS
     Dosage: 20 MILLIGRAM
     Route: 048
  5. POTASSIUM CHLORIDE. [Suspect]
     Active Substance: POTASSIUM CHLORIDE
     Indication: THYROTOXIC PERIODIC PARALYSIS
     Dosage: 10 MILLIEQUIVALENT, Q2H
     Route: 042

REACTIONS (1)
  - Hyperkalaemia [Recovered/Resolved]
